FAERS Safety Report 15346240 (Version 1)
Quarter: 2018Q3

REPORT INFORMATION
  Report Type: Report from Study
  Country: US (occurrence: US)
  Receive Date: 20180904
  Receipt Date: 20180904
  Transmission Date: 20181010
  Serious: Yes (Other)
  Sender: FDA-Public Use
  Company Number: US-ROCHE-2179340

PATIENT
  Sex: Female

DRUGS (1)
  1. OCREVUS [Suspect]
     Active Substance: OCRELIZUMAB
     Indication: MULTIPLE SCLEROSIS
     Dosage: HALF DOSE ;SECOND HALF DOSE ON 02/AUG/2018
     Route: 065
     Dates: start: 20180719

REACTIONS (3)
  - Pyrexia [Recovered/Resolved]
  - Upper respiratory tract infection [Recovered/Resolved]
  - Lower respiratory tract infection [Recovered/Resolved]
